FAERS Safety Report 5446014-4 (Version None)
Quarter: 2007Q3

REPORT INFORMATION
  Report Type: 
  Country: None (occurrence: None)
  Receive Date: 20070907
  Receipt Date: 20070830
  Transmission Date: 20080115
  Serious: Yes (Other)
  Sender: FDA-Public Use
  Company Number: US-JNJFOC-20070806565

PATIENT
  Sex: Female
  Weight: 102.51 kg

DRUGS (7)
  1. REMICADE [Suspect]
     Dosage: WEEK 2
     Route: 042
  2. REMICADE [Suspect]
     Dosage: WEEK 0
     Route: 042
  3. REMICADE [Suspect]
     Indication: RHEUMATOID ARTHRITIS
     Route: 042
  4. MTX [Concomitant]
  5. AZULFIDINE [Concomitant]
  6. WELLBUTRIN [Concomitant]
  7. SYNTHROID [Concomitant]
     Indication: THYROID DISORDER

REACTIONS (8)
  - ARTERIAL OCCLUSIVE DISEASE [None]
  - BACK PAIN [None]
  - BURNING SENSATION [None]
  - FIBROMYALGIA [None]
  - HEADACHE [None]
  - INFUSION RELATED REACTION [None]
  - PAIN [None]
  - PRURITUS [None]
